FAERS Safety Report 9614675 (Version 1)
Quarter: 2013Q4

REPORT INFORMATION
  Report Type: Spontaneous
  Country: NL (occurrence: NL)
  Receive Date: 20131011
  Receipt Date: 20131011
  Transmission Date: 20140711
  Serious: Yes (Other)
  Sender: FDA-Public Use
  Company Number: NL-JNJFOC-20131004183

PATIENT
  Age: 69 Year
  Sex: 0

DRUGS (1)
  1. REMICADE [Suspect]
     Indication: RHEUMATOID ARTHRITIS
     Route: 042

REACTIONS (5)
  - Renal failure [Unknown]
  - Aortic aneurysm [Unknown]
  - Nephrosclerosis [Unknown]
  - Aortic arteriosclerosis [Unknown]
  - Haemoglobin decreased [Unknown]
